FAERS Safety Report 4480952-4 (Version None)
Quarter: 2004Q4

REPORT INFORMATION
  Report Type: 
  Country: None (occurrence: None)
  Receive Date: 20041021
  Receipt Date: 20040723
  Transmission Date: 20050328
  Serious: Yes (Death, Life-Threatening)
  Sender: FDA-Public Use
  Company Number: 200415587US

PATIENT
  Sex: Female
  Weight: 204.5 kg

DRUGS (37)
  1. LOVENOX [Suspect]
     Indication: DISSEMINATED INTRAVASCULAR COAGULATION
     Route: 058
     Dates: start: 20031025, end: 20031103
  2. ANALGESIC LIQ [Concomitant]
     Dosage: DOSE: UNK
  3. SKELAXIN [Concomitant]
     Indication: MUSCLE SPASMS
     Route: 048
  4. SKELAXIN [Concomitant]
     Indication: PAIN
     Route: 048
  5. VISTARIL [Concomitant]
     Indication: VOMITING
     Dosage: DOSE: 25/50
     Route: 048
     Dates: start: 20030101
  6. ROCEPHIN [Concomitant]
     Indication: NAUSEA
     Route: 048
  7. NYSTATIN [Concomitant]
     Indication: RASH
     Dosage: DOSE: UNK
     Route: 051
  8. FERROUS SULFATE TAB [Concomitant]
     Route: 048
     Dates: start: 20031010
  9. DIFLUCAN [Concomitant]
     Indication: FUNGAL INFECTION
     Dosage: DOSE: UNK
     Dates: start: 20041027, end: 20041031
  10. SYNERCID [Concomitant]
     Dosage: DOSE: UNK
  11. MORPHINE [Concomitant]
     Dosage: DOSE: UNK
  12. HYDROCODONE [Concomitant]
     Indication: ABDOMINAL PAIN
     Dosage: DOSE: 5/500
     Route: 048
     Dates: start: 20031007, end: 20031021
  13. HYDROCODONE [Concomitant]
     Indication: BACK PAIN
     Dosage: DOSE: 5/500
     Route: 048
     Dates: start: 20031007, end: 20031021
  14. SLOW-FE [Concomitant]
     Indication: IRON DEFICIENCY ANAEMIA
     Route: 048
     Dates: start: 20020801, end: 20031102
  15. PROVERA [Concomitant]
     Indication: METRORRHAGIA
     Route: 048
     Dates: start: 20030903, end: 20031003
  16. ZOLOFT [Concomitant]
     Indication: DEPRESSION
     Route: 048
     Dates: end: 20030801
  17. LASIX [Concomitant]
     Indication: FLUID RETENTION
     Route: 048
     Dates: end: 20030801
  18. TEQUIN [Concomitant]
     Route: 048
     Dates: start: 20031007, end: 20031024
  19. VICODIN [Concomitant]
     Dosage: DOSE: UNK
     Route: 048
  20. NUBAIN [Concomitant]
     Indication: PAIN
     Route: 042
  21. PEPCID [Concomitant]
     Route: 048
     Dates: start: 20031007
  22. AMBIEN [Concomitant]
     Indication: INSOMNIA
     Route: 048
     Dates: start: 20031007, end: 20031021
  23. KEFLEX [Concomitant]
     Route: 048
  24. LORCET-HD [Concomitant]
     Dosage: DOSE: UNK
     Route: 048
  25. BACTROBAN [Concomitant]
     Dosage: DOSE: UNK
     Route: 061
  26. PHENTERMINE [Concomitant]
  27. LOTRISONE [Concomitant]
     Dosage: DOSE: UNK
  28. MUSCLE RELAXANTS [Concomitant]
     Dosage: DOSE: UNK
  29. CLINDAMYCIN HCL [Concomitant]
     Route: 048
     Dates: start: 20031014, end: 20031028
  30. ZOSYN [Concomitant]
     Route: 042
     Dates: start: 20031015, end: 20031022
  31. NALBUPHINE [Concomitant]
     Indication: PAIN
     Dosage: DOSE: 5/0.5; DOSE UNIT: MILLIGRAM PER MILLILITRE
     Route: 042
     Dates: start: 20031007, end: 20031021
  32. TYLENOL [Concomitant]
     Route: 048
     Dates: start: 20031007
  33. PROMETHAZINE [Concomitant]
     Indication: NAUSEA
     Route: 042
     Dates: start: 20031008
  34. PROMETHAZINE [Concomitant]
     Indication: VOMITING
     Route: 042
     Dates: start: 20031008
  35. MAALOX PLUS [Concomitant]
     Indication: DYSPEPSIA
     Route: 048
     Dates: start: 20031008
  36. HYDROXYZINE [Concomitant]
     Indication: VOMITING
     Route: 048
     Dates: start: 20031013
  37. VITAMIN K1 [Concomitant]
     Indication: NAUSEA
     Route: 058
     Dates: start: 20041011, end: 20041013

REACTIONS (5)
  - BRAIN DEATH [None]
  - CARDIO-RESPIRATORY ARREST [None]
  - SINUS TACHYCARDIA [None]
  - SUPRAVENTRICULAR EXTRASYSTOLES [None]
  - VENTRICULAR EXTRASYSTOLES [None]
